FAERS Safety Report 7795521 (Version 4)
Quarter: 2012Q4

REPORT INFORMATION
  Report Type: 
  Country: JP (occurrence: US)
  Receive Date: 20110202
  Receipt Date: 20121022
  Transmission Date: 20130627
  Serious: Yes (Other)
  Sender: FDA-Public Use
  Company Number: US-JNJFOC-20090905621

PATIENT
  Sex: Female

DRUGS (1)
  1. LEVAQUIN [Suspect]
     Indication: BACTERIAL INFECTION
     Route: 048

REACTIONS (4)
  - Rotator cuff syndrome [Unknown]
  - Tendon rupture [Unknown]
  - Tendon rupture [Unknown]
  - Rotator cuff syndrome [Unknown]
